FAERS Safety Report 9097073 (Version 2)
Quarter: 2013Q3

REPORT INFORMATION
  Report Type: Spontaneous
  Country: GB (occurrence: None)
  Receive Date: 20130123
  Receipt Date: 20130911
  Transmission Date: 20140515
  Serious: Yes (Other)
  Sender: FDA-Public Use
  Company Number: GER/UKI/13/0027485

PATIENT
  Age: 46 Year
  Sex: Male
  Weight: 75 kg

DRUGS (7)
  1. AMLODIPINE [Suspect]
     Indication: PRODUCT USED FOR UNKNOWN INDICATION
  2. INCIVO [Suspect]
     Indication: HEPATITIS C
     Route: 048
     Dates: start: 20121001
  3. COPEGUS [Suspect]
     Indication: HEPATITIS C
     Route: 048
     Dates: start: 20121001
  4. LANTUS (INSULIN GLARGINE) [Concomitant]
  5. NOVORAPID (INSULIN ASPART) [Concomitant]
  6. PEGASYS (PEGINTERFERON ALFA-2A) [Concomitant]
  7. RAMIPRIL (RAMIPRIL) [Concomitant]

REACTIONS (7)
  - Vision blurred [None]
  - Haemoglobin decreased [None]
  - Electrocardiogram QT prolonged [None]
  - Rash [None]
  - Drug interaction [None]
  - Condition aggravated [None]
  - Rash [None]
